FAERS Safety Report 10072381 (Version 1)
Quarter: 2014Q2

REPORT INFORMATION
  Report Type: Spontaneous
  Country: US (occurrence: None)
  Receive Date: 20140410
  Receipt Date: 20140410
  Transmission Date: 20141212
  Serious: Yes (Hospitalization)
  Sender: FDA-Public Use
  Company Number: None

PATIENT
  Age: 1 Year
  Sex: Female
  Weight: 10.5 kg

DRUGS (1)
  1. ONCASPAR [Suspect]

REACTIONS (9)
  - Cough [None]
  - Choking [None]
  - Dyspnoea [None]
  - Erythema [None]
  - Rash macular [None]
  - Bradycardia [None]
  - Tachycardia [None]
  - Oxygen saturation decreased [None]
  - Rales [None]
